FAERS Safety Report 9966327 (Version 2)
Quarter: 2014Q1

REPORT INFORMATION
  Report Type: Report from Study
  Country: US (occurrence: US)
  Receive Date: 20140305
  Receipt Date: 20140305
  Transmission Date: 20141002
  Serious: No
  Sender: FDA-Public Use
  Company Number: US-ABBVIE-13P-163-1108091-00

PATIENT
  Age: 70 Year
  Sex: Female

DRUGS (19)
  1. HUMIRA [Suspect]
     Indication: RHEUMATOID ARTHRITIS
     Dates: start: 201302
  2. DOCUSATE SODIUM [Concomitant]
     Indication: CONSTIPATION PROPHYLAXIS
     Dosage: DAILY
  3. VITAMIN C [Concomitant]
     Indication: IMMUNE SYSTEM DISORDER
  4. GABAPENTIN [Concomitant]
     Indication: NEURALGIA
  5. FISH OIL [Concomitant]
     Indication: ARTHROPATHY
  6. GLUCOSAMINE [Concomitant]
     Indication: ARTHROPATHY
  7. FLUTICASONE PROPIONATE [Concomitant]
     Indication: HYPERSENSITIVITY
     Dosage: 2 SPRAYS EACH NOSTRIL ONE A DAY
     Route: 045
  8. ZYRTEC [Concomitant]
     Indication: HYPERSENSITIVITY
  9. ASTEPRO [Concomitant]
     Indication: HYPERSENSITIVITY
     Dosage: DAILY
     Route: 045
  10. FOLIC ACID [Concomitant]
     Indication: VITAMIN SUPPLEMENTATION
     Dosage: 1 MG DAILY
  11. VITAMIN B 12 [Concomitant]
     Indication: VITAMIN SUPPLEMENTATION
  12. CALTRATE WITH VITAMIN D [Concomitant]
     Indication: BONE DISORDER
  13. PREDNISONE [Concomitant]
     Indication: ARTHRITIS
  14. LORTAB [Concomitant]
     Indication: ARTHRALGIA
     Dosage: 10/500 MG
  15. GENERIC FOSAMAX [Concomitant]
     Indication: OSTEOPOROSIS
  16. AMLODOPINE [Concomitant]
     Indication: HYPERTENSION
  17. METHOTREXATE [Concomitant]
     Indication: PRODUCT USED FOR UNKNOWN INDICATION
  18. METHOTREXATE [Concomitant]
  19. FLAX SEED OIL [Concomitant]
     Indication: PRODUCT USED FOR UNKNOWN INDICATION

REACTIONS (13)
  - Joint stiffness [Not Recovered/Not Resolved]
  - Arthralgia [Not Recovered/Not Resolved]
  - Arthritis [Not Recovered/Not Resolved]
  - Nail disorder [Not Recovered/Not Resolved]
  - Sciatica [Not Recovered/Not Resolved]
  - Nocturia [Not Recovered/Not Resolved]
  - Chills [Not Recovered/Not Resolved]
  - Micturition urgency [Not Recovered/Not Resolved]
  - Injection site haemorrhage [Not Recovered/Not Resolved]
  - Nocturia [Unknown]
  - Back pain [Unknown]
  - Muscle spasms [Unknown]
  - Hyperhidrosis [Unknown]
